FAERS Safety Report 16030200 (Version 1)
Quarter: 2019Q1

REPORT INFORMATION
  Report Type: Report from Study
  Country: DE (occurrence: DE)
  Receive Date: 20190304
  Receipt Date: 20190304
  Transmission Date: 20190418
  Serious: Yes (Congenital Anomaly)
  Sender: FDA-Public Use
  Company Number: DE-PFIZER INC-2019091730

PATIENT

DRUGS (2)
  1. CERTOLIZUMAB [Suspect]
     Active Substance: CERTOLIZUMAB
     Dosage: UNK
  2. METHOTREXATE SODIUM. [Suspect]
     Active Substance: METHOTREXATE SODIUM
     Dosage: UNK

REACTIONS (3)
  - Talipes [Unknown]
  - Paternal exposure timing unspecified [Unknown]
  - Congenital central nervous system anomaly [Unknown]
